FAERS Safety Report 6935898-6 (Version None)
Quarter: 2010Q3

REPORT INFORMATION
  Report Type: 
  Country: None (occurrence: None)
  Receive Date: 20100817
  Receipt Date: 20100804
  Transmission Date: 20110219
  Serious: Yes (Other)
  Sender: FDA-Public Use
  Company Number: FKO201000308

PATIENT
  Age: 51 Year
  Sex: Male

DRUGS (9)
  1. FLUOROURACIL [Suspect]
     Indication: LUNG NEOPLASM MALIGNANT
     Dosage: 46H INFUSION, INTRAVENOUS (NOT OTHERWISE SPECIFIED)
     Route: 042
  2. CISPLATIN [Concomitant]
  3. DOCETAXEL [Concomitant]
  4. IFOSFAMIDE [Concomitant]
  5. GEMCITABINE [Concomitant]
  6. TARCEVA (ERLOTINIB) [Concomitant]
  7. ALIMTA [Concomitant]
  8. LEUCOVORINE (CALCIUM FOLINATE) [Concomitant]
  9. IRINOTECAN HCL [Concomitant]

REACTIONS (7)
  - ARTERIOSPASM CORONARY [None]
  - CARDIOGENIC SHOCK [None]
  - CARDIOTOXICITY [None]
  - CHEST PAIN [None]
  - HYPOKINESIA [None]
  - LEFT VENTRICULAR DYSFUNCTION [None]
  - TROPONIN I INCREASED [None]
